FAERS Safety Report 14799616 (Version 2)
Quarter: 2020Q2

REPORT INFORMATION
  Report Type: Other
  Country: CA (occurrence: CA)
  Receive Date: 20180424
  Receipt Date: 20200617
  Transmission Date: 20200713
  Serious: Yes (Other)
  Sender: FDA-Public Use
  Company Number: CA-APOTEX-2018AP010532

PATIENT
  Sex: Male

DRUGS (16)
  1. OXYCODONE HYDROCHLORIDE W/OXYCODONE TEREPHTHA [Suspect]
     Active Substance: OXYCODONE HYDROCHLORIDE\OXYCODONE TEREPHTHALATE
     Indication: TENDONITIS
     Dosage: UNK
     Route: 065
  2. FENTANYL CITRATE. [Suspect]
     Active Substance: FENTANYL CITRATE
     Indication: TENDONITIS
     Dosage: UNK
     Route: 065
  3. PERCOCET                           /00446701/ [Suspect]
     Active Substance: ACETAMINOPHEN\OXYCODONE HYDROCHLORIDE\OXYCODONE TEREPHTHALATE
     Indication: ROTATOR CUFF SYNDROME
  4. ATASOL /00430001/ [Suspect]
     Active Substance: ACETAMINOPHEN\CAFFEINE\CODEINE PHOSPHATE
     Indication: TENDONITIS
     Dosage: UNK
     Route: 065
  5. MORPHINE [Suspect]
     Active Substance: MORPHINE
     Indication: ROTATOR CUFF SYNDROME
  6. ATASOL                             /00430001/ [Suspect]
     Active Substance: ACETAMINOPHEN\CAFFEINE\CODEINE PHOSPHATE
     Indication: ROTATOR CUFF SYNDROME
  7. OXYCODONE [Suspect]
     Active Substance: OXYCODONE
     Indication: ROTATOR CUFF SYNDROME
  8. MORPHINE [Suspect]
     Active Substance: MORPHINE
     Indication: TENDONITIS
     Dosage: UNK
     Route: 065
  9. PERCOCET                           /00446701/ [Suspect]
     Active Substance: ACETAMINOPHEN\OXYCODONE HYDROCHLORIDE\OXYCODONE TEREPHTHALATE
     Indication: TENDONITIS
     Dosage: UNK
     Route: 065
  10. ACETAMINOPHEN AND CODEINE [Suspect]
     Active Substance: ACETAMINOPHEN\CODEINE PHOSPHATE
     Indication: ROTATOR CUFF SYNDROME
  11. ACETAMINOPHEN AND CODEINE [Suspect]
     Active Substance: ACETAMINOPHEN\CODEINE PHOSPHATE
     Indication: TENDONITIS
     Dosage: UNK
     Route: 065
  12. FENTANYL. [Suspect]
     Active Substance: FENTANYL
     Indication: TENDONITIS
     Dosage: UNK
     Route: 065
  13. OXYCODONE [Suspect]
     Active Substance: OXYCODONE
     Indication: TENDONITIS
     Dosage: UNK
     Route: 065
  14. FENTANYL. [Suspect]
     Active Substance: FENTANYL
     Indication: ROTATOR CUFF SYNDROME
  15. OXYCODONE HYDROCHLORIDE W/OXYCODONE TEREPHTHA [Suspect]
     Active Substance: OXYCODONE HYDROCHLORIDE\OXYCODONE TEREPHTHALATE
     Indication: ROTATOR CUFF SYNDROME
  16. FENTANYL CITRATE. [Suspect]
     Active Substance: FENTANYL CITRATE
     Indication: ROTATOR CUFF SYNDROME

REACTIONS (2)
  - Drug diversion [Unknown]
  - Drug dependence [Unknown]
